FAERS Safety Report 7459269-1 (Version None)
Quarter: 2011Q2

REPORT INFORMATION
  Report Type: 
  Country: None (occurrence: None)
  Receive Date: 20110426
  Receipt Date: 20110411
  Transmission Date: 20111010
  Serious: Yes (Other)
  Sender: FDA-Public Use
  Company Number: 031223

PATIENT
  Sex: Female
  Weight: 53 kg

DRUGS (3)
  1. FOLIC ACID [Concomitant]
  2. KEPPRA [Suspect]
     Indication: EPILEPSY
     Dosage: (500 MG BID, 500-0-500 MG ORAL), (500-0-1000 MG (DOSE WAS INCREASED) ORAL)
     Route: 048
     Dates: start: 20101201
  3. KEPPRA [Suspect]
     Indication: EPILEPSY
     Dosage: (500 MG BID, 500-0-500 MG ORAL), (500-0-1000 MG (DOSE WAS INCREASED) ORAL)
     Route: 048
     Dates: start: 20100411, end: 20100101

REACTIONS (4)
  - CONVULSION [None]
  - PREGNANCY [None]
  - ABORTION INDUCED [None]
  - DRUG EXPOSURE DURING PREGNANCY [None]
